FAERS Safety Report 5417379-4 (Version None)
Quarter: 2007Q3

REPORT INFORMATION
  Report Type: 
  Country: None (occurrence: None)
  Receive Date: 20070814
  Receipt Date: 20061211
  Transmission Date: 20080115
  Serious: Yes (Hospitalization, Other)
  Sender: FDA-Public Use
  Company Number: 2006VX000300

PATIENT
  Age: 72 Year
  Sex: Male
  Weight: 60.3284 kg

DRUGS (20)
  1. INTERFERON ALFACON-1 [Suspect]
     Indication: HEPATITIS C
     Dosage: 9 UG;QD;SC
     Route: 058
     Dates: start: 20051130, end: 20060221
  2. ARANESP [Concomitant]
  3. SYNTHROID [Concomitant]
  4. CENTRUM [Concomitant]
  5. OSCAL [Concomitant]
  6. VITAMIN B-12 [Concomitant]
  7. MAGNESIUM OXIDE [Concomitant]
  8. ZAROXOLYN [Concomitant]
  9. SODIUM BICARBONATE [Concomitant]
  10. PRILOSEC [Concomitant]
  11. NU-IRON [Concomitant]
  12. NADOLOL [Concomitant]
  13. ADVAIR DISKUS 100/50 [Concomitant]
  14. BICITRA [Concomitant]
  15. NEUPOGEN [Concomitant]
  16. NORVASC [Concomitant]
  17. ZINC SULFATE [Concomitant]
  18. PANTOPRAZOLE SODIUM [Concomitant]
  19. OSMOLITE [Concomitant]
  20. RIFAXIMIN [Concomitant]

REACTIONS (23)
  - ABDOMINAL DISTENSION [None]
  - AORTIC CALCIFICATION [None]
  - ASTERIXIS [None]
  - ASTHENIA [None]
  - BRADYCARDIA [None]
  - CARDIOMEGALY [None]
  - CHRONIC HEPATIC FAILURE [None]
  - CHRONIC OBSTRUCTIVE PULMONARY DISEASE [None]
  - COMA [None]
  - CONSTIPATION [None]
  - DEHYDRATION [None]
  - DIARRHOEA [None]
  - DRUG INEFFECTIVE [None]
  - ESCHERICHIA BACTERAEMIA [None]
  - HAEMOGLOBIN DECREASED [None]
  - HEPATIC ENCEPHALOPATHY [None]
  - HEPATOTOXICITY [None]
  - MALNUTRITION [None]
  - NODULE [None]
  - PLEURAL EFFUSION [None]
  - PULMONARY OEDEMA [None]
  - RENAL FAILURE ACUTE [None]
  - WHEEZING [None]
